FAERS Safety Report 4380024-3 (Version None)
Quarter: 2004Q2

REPORT INFORMATION
  Report Type: 
  Country: None (occurrence: None)
  Receive Date: 20040614
  Receipt Date: 20040601
  Transmission Date: 20050107
  Serious: Yes (Hospitalization)
  Sender: FDA-Public Use
  Company Number: 2004028073

PATIENT
  Age: 6 Year
  Sex: Male
  Weight: 19.5 kg

DRUGS (14)
  1. ZITHROMAX [Suspect]
     Indication: UPPER RESPIRATORY TRACT INFLAMMATION
     Dosage: 190 MG (UNK, 1 IN 1 D), ORAL
     Route: 048
     Dates: start: 20040413, end: 20040415
  2. ACETYLSALICYLIC ACID SRT [Suspect]
     Indication: KAWASAKI'S DISEASE
     Dosage: 1000 MG (UNK, 3 IN 1D), ORAL
     Route: 048
     Dates: start: 20040415, end: 20040422
  3. TEICOPLANIN (TEICOPLANIN) [Suspect]
     Indication: BRONCHITIS
     Dosage: 200 MG (200 MG , 1 IN 1D), INTRAVENOUS
     Route: 042
     Dates: start: 20040331, end: 20040419
  4. GALENIC/PANIPENEM/BETAMIPRON/(BETAMIPRON,  PANIPENEM) [Suspect]
     Indication: BRONCHITIS
     Dosage: 1000 MG (500 MG, 2 IN 1 HR), INTRAVENOUS
     Route: 042
     Dates: start: 20040418, end: 20040420
  5. FOLIC ACID (FOLIC ACID0 [Concomitant]
  6. THEOPHYLLINE [Concomitant]
  7. KETOTIFEN [Concomitant]
  8. THYROID TAB [Concomitant]
  9. CEFTRIAXONE [Concomitant]
  10. FORMOTEROL FUMARATE (FORMOTEROL FUMARTE) [Concomitant]
  11. ENTERONON R (BIFIDOBACTERIUM BIFIDUM, LACTOBACILLUS ACIDOPHILUS, LACTO [Concomitant]
  12. ALUMINIUM SILICATE (ALUMINIUM SILICATE) [Concomitant]
  13. TERBINAFINE HYDROCHLORIED (TERBINAFINE HYDROCHLORIDE) [Concomitant]
  14. PROCATEROL HYDROCHLORIDE( PROCATEROL HYDROCHLORIDE) [Concomitant]

REACTIONS (12)
  - ALANINE AMINOTRANSFERASE INCREASED [None]
  - ASPARTATE AMINOTRANSFERASE INCREASED [None]
  - BRONCHITIS [None]
  - C-REACTIVE PROTEIN INCREASED [None]
  - CHEILITIS [None]
  - CONJUNCTIVITIS [None]
  - EOSINOPHIL PERCENTAGE INCREASED [None]
  - EXANTHEM [None]
  - JOINT DISLOCATION [None]
  - KAWASAKI'S DISEASE [None]
  - UPPER RESPIRATORY TRACT INFLAMMATION [None]
  - VIRAL INFECTION [None]
